FAERS Safety Report 22067491 (Version 2)
Quarter: 2023Q1

REPORT INFORMATION
  Report Type: Report from Study
  Country: US (occurrence: US)
  Receive Date: 20230307
  Receipt Date: 20230322
  Transmission Date: 20230417
  Serious: Yes (Hospitalization, Other)
  Sender: FDA-Public Use
  Company Number: US-BRISTOL-MYERS SQUIBB COMPANY-2023-025240

PATIENT
  Age: 65 Year
  Sex: Female
  Weight: 57.9 kg

DRUGS (5)
  1. DARATUMUMAB [Suspect]
     Active Substance: DARATUMUMAB
     Indication: Plasma cell myeloma
     Dosage: ON DAY 1,8,15,22?MOST RECENT DOSE OF DRUG ON 10-FEB-2023
     Route: 058
     Dates: start: 20230127
  2. BORTEZOMIB [Suspect]
     Active Substance: BORTEZOMIB
     Indication: Plasma cell myeloma
     Dosage: ON DAYS 1, 8, 15 AND 22?MOST RECENT DOSE OF DRUG ON 10-FEB-2023
     Route: 065
     Dates: start: 20230127
  3. IBERDOMIDE [Suspect]
     Active Substance: IBERDOMIDE
     Indication: Plasma cell myeloma
     Dosage: MOST RECENT DOSE OF DRUG ON 16-FEB-2023?1 PER DAY FOR 3 WEEKS IN 28 DAY CYCLE
     Route: 048
     Dates: start: 20230127
  4. DEXAMETHASONE [Suspect]
     Active Substance: DEXAMETHASONE
     Indication: Plasma cell myeloma
     Dosage: ON DAYS 1, 8, 15 AND 22?MOST RECENT DOSE OF DRUG ON 10-FEB-2023
     Route: 048
     Dates: start: 20230127
  5. ZOLEDRONIC ACID [Suspect]
     Active Substance: ZOLEDRONIC ACID
     Indication: Product used for unknown indication
     Dosage: 4 MG, INTRAVENOUS, AT 400 ML/HR, ADMINISTERED OVER 15 MINUTES
     Route: 042
     Dates: start: 20230210

REACTIONS (1)
  - Cellulitis [Recovered/Resolved]

NARRATIVE: CASE EVENT DATE: 20230217
